FAERS Safety Report 25850101 (Version 1)
Quarter: 2025Q3

REPORT INFORMATION
  Report Type: Spontaneous
  Country: KR (occurrence: KR)
  Receive Date: 20250926
  Receipt Date: 20250926
  Transmission Date: 20251020
  Serious: Yes (Other)
  Sender: MERCK SHARP & DOHME LLC
  Company Number: KR-009507513-2330309

PATIENT
  Age: 62 Year
  Sex: Female

DRUGS (3)
  1. PEMBROLIZUMAB [Suspect]
     Active Substance: PEMBROLIZUMAB
     Route: 042
     Dates: start: 20240813, end: 20240813
  2. CISPLATIN [Suspect]
     Active Substance: CISPLATIN
     Dosage: FORMULATION: VIAL
     Route: 042
     Dates: start: 20240813, end: 20240813
  3. GEMCITABINE [Suspect]
     Active Substance: GEMCITABINE
     Dosage: FORMULATION: VIAL
     Route: 042
     Dates: start: 20240821, end: 20240821

REACTIONS (1)
  - Leukopenia [Recovered/Resolved]

NARRATIVE: CASE EVENT DATE: 20240902
